FAERS Safety Report 15757757 (Version 1)
Quarter: 2018Q4

REPORT INFORMATION
  Report Type: Report from Study
  Country: DE (occurrence: DE)
  Receive Date: 20181225
  Receipt Date: 20181225
  Transmission Date: 20190205
  Serious: Yes (Hospitalization)
  Sender: FDA-Public Use
  Company Number: DE-ROCHE-2235019

PATIENT
  Age: 71 Year
  Sex: Male

DRUGS (7)
  1. IBRUTINIB [Suspect]
     Active Substance: IBRUTINIB
     Indication: CHRONIC LYMPHOCYTIC LEUKAEMIA
     Dosage: DATE OF LAST DOSE: 08/OCT/2018
     Route: 048
     Dates: start: 20171108
  2. COTRIMOXAZOLE [Concomitant]
     Active Substance: SULFAMETHOXAZOLE\TRIMETHOPRIM
     Route: 048
     Dates: start: 20171113
  3. OBINUTUZUMAB. [Suspect]
     Active Substance: OBINUTUZUMAB
     Indication: CHRONIC LYMPHOCYTIC LEUKAEMIA
     Dosage: DATE OF LAST DOSE: 05/SEP/2018
     Route: 042
     Dates: start: 20171108
  4. VENETOCLAX. [Suspect]
     Active Substance: VENETOCLAX
     Indication: CHRONIC LYMPHOCYTIC LEUKAEMIA
     Dosage: DATE OF LAST DOSE: 13/MAY/2018
     Route: 048
     Dates: start: 20171129
  5. ACICLOVIR [Concomitant]
     Active Substance: ACYCLOVIR
     Route: 048
     Dates: start: 20171111
  6. FENOFIBRATE. [Concomitant]
     Active Substance: FENOFIBRATE
     Route: 048
  7. ATORVASTATIN [Concomitant]
     Active Substance: ATORVASTATIN

REACTIONS (1)
  - Basal cell carcinoma [Recovered/Resolved]

NARRATIVE: CASE EVENT DATE: 20181009
